FAERS Safety Report 10366320 (Version 1)
Quarter: 2014Q3

REPORT INFORMATION
  Report Type: Report from Study
  Country: MX (occurrence: MX)
  Receive Date: 20140806
  Receipt Date: 20140806
  Transmission Date: 20150326
  Serious: Yes (Other)
  Sender: FDA-Public Use
  Company Number: PHHY2014MX096492

PATIENT
  Age: 71 Year
  Sex: Female

DRUGS (1)
  1. EXFORGE [Suspect]
     Active Substance: AMLODIPINE BESYLATE\VALSARTAN
     Dosage: UNK UKN (320/ 5 MG), UNK
     Route: 048

REACTIONS (1)
  - Cerebrovascular disorder [Not Recovered/Not Resolved]
